FAERS Safety Report 5196664-8 (Version None)
Quarter: 2006Q4

REPORT INFORMATION
  Report Type: 
  Country: None (occurrence: None)
  Receive Date: 20061228
  Receipt Date: 20061228
  Transmission Date: 20070319
  Serious: Yes (Death)
  Sender: FDA-Public Use
  Company Number: None

PATIENT
  Age: 25 Year
  Sex: Female

DRUGS (1)
  1. D STAT THROMBIN/COLLAGEN MIXTURE FLOWABLE HEMOSTAT [Suspect]
     Indication: CATHETER SITE HAEMORRHAGE
     Dosage: THROMBIN USP
     Dates: start: 20060907

REACTIONS (6)
  - CATHETER SITE HAEMORRHAGE [None]
  - CEREBRAL ISCHAEMIA [None]
  - COMPLICATION OF DEVICE REMOVAL [None]
  - LOSS OF CONSCIOUSNESS [None]
  - MALAISE [None]
  - PULMONARY EMBOLISM [None]
